FAERS Safety Report 6832404-1 (Version None)
Quarter: 2010Q3

REPORT INFORMATION
  Report Type: 
  Country: None (occurrence: None)
  Receive Date: 20100712
  Receipt Date: 20070307
  Transmission Date: 20110219
  Serious: No
  Sender: FDA-Public Use
  Company Number: US-PFIZER INC-2007020485

PATIENT
  Sex: Female
  Weight: 54.43 kg

DRUGS (7)
  1. CHANTIX [Suspect]
     Indication: SMOKING CESSATION THERAPY
     Dates: start: 20070303
  2. CELEBREX [Concomitant]
  3. PROTONIX [Concomitant]
     Indication: GASTRIC DISORDER
  4. CALCIUM [Concomitant]
  5. VITAMINS [Concomitant]
  6. REQUIP [Concomitant]
     Indication: RESTLESS LEGS SYNDROME
  7. ZOMIG [Concomitant]
     Indication: MIGRAINE

REACTIONS (2)
  - DYSGEUSIA [None]
  - HEADACHE [None]
